FAERS Safety Report 5381063-6 (Version None)
Quarter: 2007Q3

REPORT INFORMATION
  Report Type: 
  Country: None (occurrence: None)
  Receive Date: 20070706
  Receipt Date: 20070627
  Transmission Date: 20080115
  Serious: Yes (Other)
  Sender: FDA-Public Use
  Company Number: US-PFIZER INC-2006091919

PATIENT
  Sex: Female
  Weight: 90.7 kg

DRUGS (5)
  1. NEURONTIN [Suspect]
     Indication: GUILLAIN-BARRE SYNDROME
  2. GABAPENTIN [Suspect]
     Indication: GUILLAIN-BARRE SYNDROME
     Dosage: DAILY DOSE:4200MG-TEXT:1500MG IN AM AND PM/1200MG AT NOON
     Route: 048
  3. GABAPENTIN [Suspect]
     Indication: NEURALGIA
  4. BUPROPION [Concomitant]
  5. NORTRIPTYLINE HCL [Concomitant]

REACTIONS (2)
  - BACK PAIN [None]
  - DRUG EFFECT DECREASED [None]
